FAERS Safety Report 9230656 (Version 4)
Quarter: 2014Q1

REPORT INFORMATION
  Report Type: Spontaneous
  Country: GB (occurrence: GB)
  Receive Date: 20130415
  Receipt Date: 20140228
  Transmission Date: 20141002
  Serious: Yes (Hospitalization, Other)
  Sender: FDA-Public Use
  Company Number: GB-009507513-1304GBR005569

PATIENT
  Sex: Male

DRUGS (2)
  1. ONCOTICE [Suspect]
     Indication: BLADDER CANCER STAGE 0, WITH CANCER IN SITU
     Dosage: UNK
     Dates: start: 20090210, end: 20090210
  2. ONCOTICE [Suspect]
     Dates: start: 20120322, end: 20120322

REACTIONS (33)
  - Carcinoid tumour pulmonary [Unknown]
  - Carcinoid tumour [Unknown]
  - Stent placement [Unknown]
  - Gastrointestinal disorder [Unknown]
  - Infection [Unknown]
  - Prostatomegaly [Unknown]
  - Lymphadenopathy [Unknown]
  - Bladder trabeculation [Unknown]
  - Prostatomegaly [Unknown]
  - Gastritis [Unknown]
  - Anaemia [Unknown]
  - Loss of consciousness [Unknown]
  - Mesenteric neoplasm [Unknown]
  - Carcinoid tumour of the small bowel [Unknown]
  - Alcoholic seizure [Unknown]
  - Convulsion [Unknown]
  - Genital lesion [Unknown]
  - Metastases to liver [Unknown]
  - Disseminated tuberculosis [Unknown]
  - Anaemia [Unknown]
  - Hemianopia homonymous [Unknown]
  - Lacunar infarction [Unknown]
  - Constipation [Unknown]
  - Arthralgia [Unknown]
  - Aortic stent insertion [Unknown]
  - Aortic aneurysm [Unknown]
  - Aorto-duodenal fistula [Unknown]
  - Mycotic aneurysm [Unknown]
  - Bacteraemia [Unknown]
  - Device related infection [Unknown]
  - Penis injury [Unknown]
  - Urinary retention [Unknown]
  - Pollakiuria [Unknown]
